FAERS Safety Report 24320131 (Version 1)
Quarter: 2024Q3

REPORT INFORMATION
  Report Type: Spontaneous
  Country: JP (occurrence: JP)
  Receive Date: 20240914
  Receipt Date: 20240914
  Transmission Date: 20241016
  Serious: Yes (Other)
  Sender: AMGEN
  Company Number: JP-AMGEN-JPNSP2024178368

PATIENT
  Age: 65 Year
  Sex: Male
  Weight: 78 kg

DRUGS (17)
  1. BLINCYTO [Suspect]
     Active Substance: BLINATUMOMAB
     Indication: Philadelphia chromosome positive
     Dosage: UNK, DRIP INFUSION
     Route: 042
     Dates: start: 20240208, end: 2024
  2. BLINCYTO [Suspect]
     Active Substance: BLINATUMOMAB
     Indication: Acute lymphocytic leukaemia
     Dosage: UNK
     Route: 042
     Dates: start: 20240413, end: 20240510
  3. BLINCYTO [Suspect]
     Active Substance: BLINATUMOMAB
     Dosage: 28 MICROGRAM THREE TIMES
     Route: 042
     Dates: start: 20240605, end: 20240608
  4. BLINCYTO [Suspect]
     Active Substance: BLINATUMOMAB
     Dosage: 9 MICROGRAM, QD, DOSE INCREASED
     Route: 042
     Dates: start: 20240612, end: 2024
  5. BLINCYTO [Suspect]
     Active Substance: BLINATUMOMAB
     Dosage: 28 MICROGRAM, QD
     Route: 042
     Dates: start: 20240619, end: 20240620
  6. BLINCYTO [Suspect]
     Active Substance: BLINATUMOMAB
     Dosage: 9 MICROGRAM, QD
     Route: 042
     Dates: start: 20240626, end: 20240702
  7. BLINCYTO [Suspect]
     Active Substance: BLINATUMOMAB
     Dosage: UNK
     Route: 042
     Dates: start: 20240723, end: 20240819
  8. CARBOCYSTEINE [Concomitant]
     Active Substance: CARBOCYSTEINE
     Dosage: UNK, 240 MG TABLET
     Dates: start: 20240604
  9. LANSOPRAZOLE [Concomitant]
     Active Substance: LANSOPRAZOLE
     Dosage: UNK, OD TABLET 3 MG
     Dates: start: 20231018
  10. ZOVIRAX [Concomitant]
     Active Substance: ACYCLOVIR
     Dosage: UNK 200 MG TABLET
     Dates: start: 20231018
  11. ITRACONAZOLE [Concomitant]
     Active Substance: ITRACONAZOLE
     Dosage: UNK, TABLET 50 MG
     Dates: start: 20231021
  12. SPIRONOLACTONE [Concomitant]
     Active Substance: SPIRONOLACTONE
     Dosage: UNK, TABLET 25 MG
     Dates: start: 20231206
  13. MAGNESIUM OXIDE [Concomitant]
     Active Substance: MAGNESIUM OXIDE
     Dosage: UNK, TABLET 330 MG
     Dates: start: 20231018
  14. ACYCLOVIR [Concomitant]
     Active Substance: ACYCLOVIR
     Dosage: UNK, TABLET 220 MG
     Dates: start: 20231018
  15. ALENDRONATE [Concomitant]
     Active Substance: ALENDRONATE SODIUM
     Dosage: 35 MILLIGRAM
     Dates: start: 20231018
  16. DAYVIGO [Concomitant]
     Active Substance: LEMBOREXANT
     Dosage: UNK, TABLET 5 MG
     Dates: start: 20231031
  17. ATOVAQUONE [Concomitant]
     Active Substance: ATOVAQUONE
     Dosage: UNK, SUSPENSION 15% 5 ML
     Route: 048
     Dates: start: 20231031

REACTIONS (1)
  - Amnesia [Recovered/Resolved]

NARRATIVE: CASE EVENT DATE: 20240608
